FAERS Safety Report 6411519-6 (Version None)
Quarter: 2009Q4

REPORT INFORMATION
  Report Type: 
  Country: None (occurrence: None)
  Receive Date: 20091021
  Receipt Date: 20091021
  Transmission Date: 20100525
  Serious: Yes (Other)
  Sender: FDA-Public Use
  Company Number: None

PATIENT
  Age: 47 Year

DRUGS (2)
  1. REGLAN [Suspect]
  2. GENERIC COUNTER PARTS [Concomitant]

REACTIONS (2)
  - DYSKINESIA [None]
  - PRODUCT SUBSTITUTION ISSUE [None]
